FAERS Safety Report 12936219 (Version 1)
Quarter: 2016Q4

REPORT INFORMATION
  Report Type: Report from Study
  Country: MX (occurrence: MX)
  Receive Date: 20161114
  Receipt Date: 20161114
  Transmission Date: 20170207
  Serious: Yes (Death)
  Sender: FDA-Public Use
  Company Number: PHHY2016MX137580

PATIENT
  Sex: Male
  Weight: 67 kg

DRUGS (3)
  1. GALVUS MET [Suspect]
     Active Substance: METFORMIN HYDROCHLORIDE\VILDAGLIPTIN
     Indication: DIABETES MELLITUS
     Dosage: UNK
     Route: 048
     Dates: start: 2012
  2. ARAVA [Concomitant]
     Active Substance: LEFLUNOMIDE
     Indication: ARTHRITIS
     Route: 065
  3. ONBREZ BREEZHALER [Suspect]
     Active Substance: INDACATEROL
     Indication: PULMONARY FIBROSIS
     Dosage: 1 DF (CAPSULE), Q12H
     Route: 055
     Dates: start: 2012

REACTIONS (5)
  - Pulmonary fibrosis [Fatal]
  - Myocardial infarction [Fatal]
  - Product use issue [Recovered/Resolved]
  - Respiratory arrest [Fatal]
  - Drug prescribing error [Unknown]

NARRATIVE: CASE EVENT DATE: 2012
